FAERS Safety Report 4561343-4 (Version None)
Quarter: 2005Q1

REPORT INFORMATION
  Report Type: 
  Country: None (occurrence: None)
  Receive Date: 20050124
  Receipt Date: 20050112
  Transmission Date: 20050727
  Serious: Yes (Other)
  Sender: FDA-Public Use
  Company Number: 2004111293

PATIENT
  Sex: Female

DRUGS (3)
  1. NEURONTIN [Suspect]
     Indication: AGEUSIA
     Dosage: 300 MG (300 MG, 1 IN 1 D), ORAL
     Route: 048
     Dates: start: 20040601, end: 20040601
  2. NEURONTIN [Suspect]
     Indication: HYPOAESTHESIA ORAL
     Dosage: 300 MG (300 MG, 1 IN 1 D), ORAL
     Route: 048
     Dates: start: 20040601, end: 20040601
  3. ZOLOFT [Suspect]
     Indication: ILL-DEFINED DISORDER
     Dosage: ORAL
     Route: 048
     Dates: start: 20010101, end: 20010101

REACTIONS (4)
  - MOVEMENT DISORDER [None]
  - PALPITATIONS [None]
  - SOMNOLENCE [None]
  - SPEECH DISORDER [None]
